FAERS Safety Report 10154833 (Version 3)
Quarter: 2014Q2

REPORT INFORMATION
  Report Type: Report from Study
  Country: DE (occurrence: DE)
  Receive Date: 20140506
  Receipt Date: 20140513
  Transmission Date: 20141212
  Serious: Yes (Hospitalization)
  Sender: FDA-Public Use
  Company Number: DE-009507513-1403DEU014259

PATIENT
  Age: 74 Year
  Sex: Male
  Weight: 72 kg

DRUGS (6)
  1. BOCEPREVIR [Suspect]
     Indication: CHRONIC HEPATITIS C
     Dosage: 2400 MG, QD
     Route: 048
     Dates: start: 20130402, end: 20140128
  2. RIBAVIRIN [Suspect]
     Indication: CHRONIC HEPATITIS C
     Dosage: 800 MG, QD
     Route: 065
     Dates: start: 20130305
  3. RIBAVIRIN [Suspect]
     Dosage: 700 MG, QD
     Route: 065
     Dates: start: 20130430
  4. RIBAVIRIN [Suspect]
     Dosage: 600 MG, QD
     Route: 065
     Dates: start: 20130625
  5. RIBAVIRIN [Suspect]
     Dosage: 400 MG, QD
     Route: 065
     Dates: start: 20130806, end: 20140128
  6. PEGASYS [Suspect]
     Indication: CHRONIC HEPATITIS C
     Dosage: 180 MICROGRAM, QW
     Route: 065
     Dates: start: 20130305, end: 20140128

REACTIONS (3)
  - Anaemia [Recovering/Resolving]
  - Anaemia [Recovering/Resolving]
  - Anaemia [Recovering/Resolving]
